FAERS Safety Report 6902861-0 (Version None)
Quarter: 2010Q3

REPORT INFORMATION
  Report Type: 
  Country: None (occurrence: None)
  Receive Date: 20100803
  Receipt Date: 20080716
  Transmission Date: 20110219
  Serious: No
  Sender: FDA-Public Use
  Company Number: US-PFIZER INC-2008060633

PATIENT
  Sex: Female
  Weight: 56.8 kg

DRUGS (13)
  1. LYRICA [Suspect]
     Indication: MYALGIA
     Dates: start: 20080701, end: 20080701
  2. LYRICA [Suspect]
     Indication: PAIN
  3. PREDNISONE [Concomitant]
  4. SERTRALINE HYDROCHLORIDE [Concomitant]
  5. MIDODRINE HYDROCHLORIDE [Concomitant]
  6. ACETYLSALICYLIC ACID SRT [Concomitant]
  7. PREVACID [Concomitant]
  8. FLORINEF [Concomitant]
  9. METOPROLOL [Concomitant]
  10. SPIRIVA [Concomitant]
  11. VITAMIN D [Concomitant]
  12. POTASSIUM [Concomitant]
  13. TEMAZEPAM [Concomitant]

REACTIONS (3)
  - DRUG INEFFECTIVE [None]
  - JOINT SWELLING [None]
  - OEDEMA PERIPHERAL [None]
